FAERS Safety Report 19467869 (Version 1)
Quarter: 2021Q2

REPORT INFORMATION
  Report Type: Spontaneous
  Country: DE (occurrence: DE)
  Receive Date: 20210628
  Receipt Date: 20210628
  Transmission Date: 20210717
  Serious: Yes (Other)
  Sender: FDA-Public Use
  Company Number: DE-TEVA-2021-DE-1924692

PATIENT

DRUGS (5)
  1. LACOSAMIDE. [Interacting]
     Active Substance: LACOSAMIDE
     Indication: PARTIAL SEIZURES
     Route: 065
  2. LAMOTRIGINE. [Suspect]
     Active Substance: LAMOTRIGINE
     Indication: PARTIAL SEIZURES
     Route: 065
  3. PERAMPANEL [Interacting]
     Active Substance: PERAMPANEL
     Indication: PARTIAL SEIZURES
     Dosage: 4 MILLIGRAM DAILY; AT BEDTIME
     Route: 048
  4. PHENYTOIN. [Interacting]
     Active Substance: PHENYTOIN
     Indication: PARTIAL SEIZURES
     Route: 065
  5. BRIVARACETAM [Interacting]
     Active Substance: BRIVARACETAM
     Indication: PARTIAL SEIZURES
     Route: 065

REACTIONS (3)
  - Drug ineffective [Unknown]
  - Drug interaction [Unknown]
  - Drug clearance increased [Unknown]
